FAERS Safety Report 7670733-2 (Version None)
Quarter: 2011Q3

REPORT INFORMATION
  Report Type: 
  Country: None (occurrence: None)
  Receive Date: 20110809
  Receipt Date: 20081111
  Transmission Date: 20111222
  Serious: No
  Sender: FDA-Public Use
  Company Number: 2008BI030278

PATIENT
  Age: 59 Year
  Sex: Male

DRUGS (1)
  1. TYSABRI [Suspect]
     Indication: MULTIPLE SCLEROSIS
     Route: 042
     Dates: start: 20081006, end: 20101005

REACTIONS (13)
  - BALANCE DISORDER [None]
  - MUSCULAR WEAKNESS [None]
  - ABDOMINAL PAIN UPPER [None]
  - INFLUENZA [None]
  - SINUSITIS [None]
  - WEIGHT DECREASED [None]
  - NAUSEA [None]
  - HYPOACUSIS [None]
  - ALOPECIA [None]
  - VOMITING [None]
  - MEMORY IMPAIRMENT [None]
  - ABDOMINAL DISCOMFORT [None]
  - HEADACHE [None]
